FAERS Safety Report 9485957 (Version 1)
Quarter: 2013Q3

REPORT INFORMATION
  Report Type: Spontaneous
  Country: US (occurrence: None)
  Receive Date: 20130827
  Receipt Date: 20130827
  Transmission Date: 20140515
  Serious: Yes (Hospitalization)
  Sender: FDA-Public Use
  Company Number: None

PATIENT
  Age: 65 Year
  Sex: Male
  Weight: 105.9 kg

DRUGS (1)
  1. SULINDAC [Suspect]
     Indication: PAIN
     Dosage: 200 MG  BID  PO
     Route: 048
     Dates: start: 20111008, end: 20111107

REACTIONS (2)
  - Hypersensitivity [None]
  - Dry skin [None]
